FAERS Safety Report 13899846 (Version 1)
Quarter: 2017Q3

REPORT INFORMATION
  Report Type: Other
  Country: FR (occurrence: FR)
  Receive Date: 20170824
  Receipt Date: 20170824
  Transmission Date: 20171127
  Serious: Yes (Other)
  Sender: FDA-Public Use
  Company Number: FR-SEPTODONT-201704207

PATIENT
  Age: 46 Year
  Sex: Female

DRUGS (1)
  1. SEPTANEST 40 MG/ML ADR?NALIN?E AU 1/200.000 [Suspect]
     Active Substance: ARTICAINE HYDROCHLORIDE\EPINEPHRINE BITARTRATE
     Indication: LOCAL ANAESTHESIA
     Dosage: 1 CARTRIDGE FOR LOCAL ANESTHESIA IN MANIDBULAR FORAMEN
     Route: 004

REACTIONS (8)
  - Facial asymmetry [Recovering/Resolving]
  - Ear pain [Unknown]
  - Speech disorder [Unknown]
  - Herpes zoster oticus [Unknown]
  - Eating disorder [Unknown]
  - Facial paralysis [Recovered/Resolved]
  - Erythema [Unknown]
  - Facial paralysis [Recovering/Resolving]
